FAERS Safety Report 14843764 (Version 4)
Quarter: 2020Q3

REPORT INFORMATION
  Report Type: Spontaneous
  Country: SE (occurrence: SE)
  Receive Date: 20180503
  Receipt Date: 20200730
  Transmission Date: 20201102
  Serious: Yes (Other)
  Sender: FDA-Public Use
  Company Number: SE-MYLANLABS-2018M1027735

PATIENT
  Age: 73 Year
  Sex: Female
  Weight: 82.5 kg

DRUGS (9)
  1. FELODIPINE. [Suspect]
     Active Substance: FELODIPINE
     Indication: BLOOD PRESSURE INCREASED
     Dosage: UNK
  2. TROMBYL [Concomitant]
     Active Substance: ASPIRIN
     Indication: PRODUCT USED FOR UNKNOWN INDICATION
     Dosage: UNK
     Dates: start: 199901
  3. VALSARTAN. [Suspect]
     Active Substance: VALSARTAN
     Indication: BLOOD PRESSURE INCREASED
     Dosage: UNK
  4. ESIDREX [Suspect]
     Active Substance: HYDROCHLOROTHIAZIDE
     Indication: BLOOD PRESSURE INCREASED
     Dosage: UNK
  5. LERCANIDIPINE [Suspect]
     Active Substance: LERCANIDIPINE
     Indication: SECONDARY HYPERTENSION
     Dosage: UNK
  6. ALFUZOSIN [Suspect]
     Active Substance: ALFUZOSIN
     Dosage: UNK UNK, QD (2,5 MG TILL 20 MG))
     Route: 065
     Dates: start: 2010, end: 20180328
  7. ALFUZOSIN [Suspect]
     Active Substance: ALFUZOSIN
     Indication: BLOOD PRESSURE INCREASED
     Dosage: 2.5 MG, QD
     Dates: start: 2010, end: 20180328
  8. ENALAPRIL W/LERCANIDIPINE [Suspect]
     Active Substance: ENALAPRIL\LERCANIDIPINE
     Indication: SECONDARY HYPERTENSION
     Dosage: UNK
  9. INSULIN HUMAN [Concomitant]
     Active Substance: INSULIN HUMAN
     Indication: PRODUCT USED FOR UNKNOWN INDICATION
     Dosage: UNK
     Dates: start: 1992

REACTIONS (4)
  - Dyspnoea exertional [Recovered/Resolved with Sequelae]
  - Pain [Recovered/Resolved with Sequelae]
  - Vision blurred [Recovered/Resolved with Sequelae]
  - Headache [Recovered/Resolved with Sequelae]

NARRATIVE: CASE EVENT DATE: 2010
